FAERS Safety Report 7214468-9 (Version None)
Quarter: 2011Q1

REPORT INFORMATION
  Report Type: 
  Country: None (occurrence: None)
  Receive Date: 20110107
  Receipt Date: 20110103
  Transmission Date: 20110831
  Serious: Yes (Hospitalization)
  Sender: FDA-Public Use
  Company Number: PHHY2011US00754

PATIENT
  Age: 15 Year
  Sex: Male

DRUGS (1)
  1. TOBI [Suspect]
     Indication: CYSTIC FIBROSIS
     Dosage: 1 DF, BID
     Dates: start: 20091203

REACTIONS (1)
  - UPPER RESPIRATORY TRACT INFECTION [None]
